FAERS Safety Report 10951189 (Version 2)
Quarter: 2015Q3

REPORT INFORMATION
  Report Type: Spontaneous
  Country: US (occurrence: US)
  Receive Date: 20150324
  Receipt Date: 20150908
  Transmission Date: 20151125
  Serious: Yes (Hospitalization)
  Sender: FDA-Public Use
  Company Number: US-BAYER-2015-065526

PATIENT
  Age: 30 Year
  Sex: Female
  Weight: 68.27 kg

DRUGS (2)
  1. MIRENA [Suspect]
     Active Substance: LEVONORGESTREL
     Indication: CONTRACEPTION
     Dosage: 20 MCG/24HR, CONT
     Route: 015
     Dates: start: 20100903, end: 20101019
  2. MOTRIN [Concomitant]
     Active Substance: IBUPROFEN

REACTIONS (5)
  - Injury [None]
  - Device issue [None]
  - Embedded device [None]
  - Procedural pain [Not Recovered/Not Resolved]
  - Pain [None]

NARRATIVE: CASE EVENT DATE: 201009
